FAERS Safety Report 4597040-9 (Version None)
Quarter: 2005Q1

REPORT INFORMATION
  Report Type: 
  Country: None (occurrence: None)
  Receive Date: 20050301
  Receipt Date: 20050217
  Transmission Date: 20050727
  Serious: Yes (Hospitalization)
  Sender: FDA-Public Use
  Company Number: 004215

PATIENT
  Sex: Female

DRUGS (1)
  1. CLARAVIS [Suspect]
     Dosage: ORAL
     Route: 048
     Dates: start: 20040419, end: 20041228

REACTIONS (7)
  - ABDOMINAL PAIN [None]
  - ANURIA [None]
  - OVARIAN CYST [None]
  - PAIN [None]
  - PELVIC ABSCESS [None]
  - VAGINAL HAEMORRHAGE [None]
  - VULVOVAGINAL DISCOMFORT [None]
